FAERS Safety Report 9458991 (Version 1)
Quarter: 2013Q3

REPORT INFORMATION
  Report Type: Report from Study
  Country: CA (occurrence: CA)
  Receive Date: 20130814
  Receipt Date: 20130814
  Transmission Date: 20140515
  Serious: Yes (Hospitalization)
  Sender: FDA-Public Use
  Company Number: CA-PFIZER INC-2013230196

PATIENT
  Sex: Female

DRUGS (4)
  1. METRONIDAZOLE [Suspect]
     Indication: NEOPLASM
     Dosage: 1500 MG/M2
     Route: 048
  2. ETOPOSIDE [Suspect]
     Indication: NEOPLASM
     Dosage: 100 MG/M2, DAILY
     Route: 042
  3. METRONIDAZOLE [Suspect]
     Indication: NEOPLASM
     Dosage: 500 MG/M2, UNK
     Route: 054
  4. KETOCONAZOLE [Suspect]
     Indication: NEOPLASM
     Dosage: 700 MG/M2 EACH MORNING
     Route: 048

REACTIONS (3)
  - Asthenia [Recovered/Resolved]
  - Bedridden [Recovered/Resolved]
  - Musculoskeletal stiffness [Recovered/Resolved]
